FAERS Safety Report 7493769-3 (Version None)
Quarter: 2011Q2

REPORT INFORMATION
  Report Type: 
  Country: None (occurrence: None)
  Receive Date: 20110520
  Receipt Date: 20110317
  Transmission Date: 20111010
  Serious: No
  Sender: FDA-Public Use
  Company Number: US-ASTRAZENECA-2011SE15104

PATIENT
  Age: 18647 Day
  Sex: Female
  Weight: 70.3 kg

DRUGS (9)
  1. VIMOVO [Suspect]
     Indication: ARTHRALGIA
     Dosage: 500 MG /20 MG BID
     Route: 048
     Dates: start: 20110314, end: 20110317
  2. SYMBICORT [Concomitant]
     Indication: CHRONIC OBSTRUCTIVE PULMONARY DISEASE
  3. IC OXAZEPAM [Concomitant]
     Indication: MUSCLE RELAXANT THERAPY
  4. NORCO [Concomitant]
     Indication: PAIN
  5. SOMA [Concomitant]
     Indication: MUSCLE RELAXANT THERAPY
  6. CHANTIX [Concomitant]
     Indication: SMOKING CESSATION THERAPY
  7. FLONASE [Concomitant]
     Indication: NASAL CONGESTION
  8. IC CLONAZEPAM [Concomitant]
     Indication: ANXIETY
  9. IC OXAZEPAM [Concomitant]
     Indication: SLEEP DISORDER

REACTIONS (2)
  - MUSCULOSKELETAL PAIN [None]
  - DRUG DOSE OMISSION [None]
